FAERS Safety Report 6170786-7 (Version None)
Quarter: 2009Q2

REPORT INFORMATION
  Report Type: 
  Country: None (occurrence: None)
  Receive Date: 20090427
  Receipt Date: 20090413
  Transmission Date: 20091009
  Serious: Yes (Hospitalization)
  Sender: FDA-Public Use
  Company Number: 2009SP000957

PATIENT
  Age: 66 Year
  Sex: Female

DRUGS (10)
  1. XOPENEX [Suspect]
     Dosage: 0.63 MG/3ML; PRN; INHALATION
     Route: 055
  2. LANOXIN [Concomitant]
  3. PREDNISONE [Concomitant]
  4. WARFARIN SODIUM [Concomitant]
  5. FAMOTIDINE [Concomitant]
  6. VENTOLIN HFA [Concomitant]
  7. METHIMAZOLE [Concomitant]
  8. KENALOG [Concomitant]
  9. DIURETICS [Concomitant]
  10. SPIRIVA [Concomitant]

REACTIONS (3)
  - ARRHYTHMIA [None]
  - CHRONIC OBSTRUCTIVE PULMONARY DISEASE [None]
  - OSTEOPOROSIS [None]
